FAERS Safety Report 5312899-5 (Version None)
Quarter: 2007Q2

REPORT INFORMATION
  Report Type: 
  Country: None (occurrence: None)
  Receive Date: 20070430
  Receipt Date: 20070418
  Transmission Date: 20071010
  Serious: Yes (Life-Threatening, Hospitalization, Other)
  Sender: FDA-Public Use
  Company Number: FR-PFIZER INC-2006148315

PATIENT
  Age: 68 Year
  Sex: Male

DRUGS (10)
  1. TRIFLUCAN [Suspect]
     Indication: INFECTION
     Route: 042
     Dates: start: 20061106, end: 20061109
  2. CIPROFLOXACIN [Suspect]
     Indication: INFECTION
     Dosage: TEXT:1 G
     Route: 048
     Dates: start: 20061106, end: 20061109
  3. AUGMENTIN '125' [Suspect]
     Indication: INFECTION
     Dosage: TEXT:3 G
     Route: 042
     Dates: start: 20061106, end: 20061109
  4. ETHYOL [Suspect]
     Dosage: DAILY DOSE:340MG
     Route: 042
     Dates: start: 20060928, end: 20061106
  5. PARACETAMOL [Suspect]
     Dosage: DAILY DOSE:1GRAM
     Route: 042
     Dates: start: 20061106, end: 20061107
  6. METOCLOPRAMIDE [Suspect]
     Indication: NAUSEA
     Dosage: DAILY DOSE:60MG
     Route: 042
     Dates: start: 20061106, end: 20061106
  7. METOCLOPRAMIDE [Suspect]
     Indication: VOMITING
  8. SEROPRAM [Concomitant]
  9. TEMESTA [Concomitant]
  10. ALL OTHER THERAPEUTIC PRODUCTS [Concomitant]

REACTIONS (4)
  - AGRANULOCYTOSIS [None]
  - EYE DISORDER [None]
  - MULTI-ORGAN FAILURE [None]
  - TOXIC EPIDERMAL NECROLYSIS [None]
